FAERS Safety Report 9694285 (Version 1)
Quarter: 2013Q4

REPORT INFORMATION
  Report Type: Spontaneous
  Country: US (occurrence: US)
  Receive Date: 20131118
  Receipt Date: 20131118
  Transmission Date: 20140711
  Serious: No
  Sender: FDA-Public Use
  Company Number: US-GILEAD-2007-0013012

PATIENT
  Age: 46 Year
  Sex: Female
  Weight: 79.38 kg

DRUGS (5)
  1. LETAIRIS [Suspect]
     Route: 048
     Dates: start: 20070804
  2. VIAGRA [Concomitant]
     Route: 048
  3. OXYGEN [Concomitant]
  4. COUMADIN [Concomitant]
     Route: 048
  5. ALDACTONE [Concomitant]
     Indication: HYPERTENSION
     Route: 048

REACTIONS (1)
  - Nasal congestion [Not Recovered/Not Resolved]
